FAERS Safety Report 8834887 (Version 3)
Quarter: 2013Q1

REPORT INFORMATION
  Report Type: Spontaneous
  Country: US (occurrence: US)
  Receive Date: 20121011
  Receipt Date: 20130121
  Transmission Date: 20140127
  Serious: Yes (Hospitalization)
  Sender: FDA-Public Use
  Company Number: US-BIOGENIDEC-2012BI042565

PATIENT
  Age: 35 Year
  Sex: Female

DRUGS (4)
  1. AVONEX [Suspect]
     Indication: MULTIPLE SCLEROSIS
     Route: 030
     Dates: start: 20000101
  2. AVONEX [Suspect]
     Indication: MULTIPLE SCLEROSIS
     Route: 030
     Dates: start: 20040606
  3. AVONEX [Suspect]
     Indication: MULTIPLE SCLEROSIS
     Route: 030
     Dates: start: 2012
  4. COLACE [Concomitant]
     Indication: IRRITABLE BOWEL SYNDROME

REACTIONS (20)
  - Fatigue [Recovered/Resolved]
  - Influenza like illness [Recovered/Resolved]
  - Pyrexia [Recovered/Resolved]
  - Chills [Recovered/Resolved]
  - Depression [Not Recovered/Not Resolved]
  - Anxiety [Recovered/Resolved]
  - Multiple sclerosis relapse [Not Recovered/Not Resolved]
  - Uterine neoplasm [Recovered/Resolved]
  - Ovarian neoplasm [Recovered/Resolved]
  - Polymenorrhoea [Recovered/Resolved]
  - Nervousness [Recovered/Resolved]
  - Somnolence [Recovered/Resolved]
  - Sluggishness [Recovered/Resolved]
  - Menstrual disorder [Unknown]
  - Migraine [Recovered/Resolved]
  - Scar pain [Not Recovered/Not Resolved]
  - Lethargy [Recovered/Resolved]
  - Abdominal discomfort [Not Recovered/Not Resolved]
  - Biliary dilatation [Not Recovered/Not Resolved]
  - Menorrhagia [Recovered/Resolved]
